FAERS Safety Report 14420010 (Version 2)
Quarter: 2018Q1

REPORT INFORMATION
  Report Type: Spontaneous
  Country: US (occurrence: US)
  Receive Date: 20180122
  Receipt Date: 20180131
  Transmission Date: 20180509
  Serious: Yes (Life-Threatening)
  Sender: FDA-Public Use
  Company Number: US-MYLANLABS-2018M1005145

PATIENT
  Age: 40 Year
  Sex: Male

DRUGS (10)
  1. FENTANYL. [Concomitant]
     Active Substance: FENTANYL
     Indication: GENERAL ANAESTHESIA
     Dosage: 50 MICROG; 2 DOSES WERE ADMINISTERED: 1ST BEFORE TRANSPORTING TO OR AND SECOND ALONG WITH OTHER G...
     Route: 042
  2. PROPOFOL. [Concomitant]
     Active Substance: PROPOFOL
     Indication: GENERAL ANAESTHESIA
     Dosage: 200 MG
     Route: 065
  3. SEVOFLURANE. [Concomitant]
     Active Substance: SEVOFLURANE
     Indication: LOCAL ANAESTHESIA
     Dosage: A TOTAL VOLUME OF APPROXIMATELY 4 ML
     Route: 065
  4. LIDOCAINE. [Suspect]
     Active Substance: LIDOCAINE
     Dosage: 1 ML
     Route: 065
  5. EPINEPHRINE. [Suspect]
     Active Substance: EPINEPHRINE
     Dosage: 1 ML
     Route: 065
  6. LIDOCAINE. [Suspect]
     Active Substance: LIDOCAINE
     Indication: LOCAL ANAESTHESIA
     Dosage: A TOTAL VOLUME OF APPROXIMATELY 4 ML
     Route: 065
  7. EPINEPHRINE. [Suspect]
     Active Substance: EPINEPHRINE
     Indication: LOCAL ANAESTHESIA
     Dosage: A TOTAL VOLUME OF APPROXIMATELY 4 ML
     Route: 065
  8. SEVOFLURANE. [Concomitant]
     Active Substance: SEVOFLURANE
     Indication: GENERAL ANAESTHESIA
     Dosage: UNK
     Route: 065
  9. SEVOFLURANE. [Concomitant]
     Active Substance: SEVOFLURANE
     Dosage: 1 ML
     Route: 065
  10. LIDOCAINE. [Concomitant]
     Active Substance: LIDOCAINE
     Indication: GENERAL ANAESTHESIA
     Dosage: 20 MG
     Route: 065

REACTIONS (1)
  - Oculocardiac reflex [Recovered/Resolved]
